FAERS Safety Report 12459175 (Version 1)
Quarter: 2016Q2

REPORT INFORMATION
  Report Type: Spontaneous
  Country: US (occurrence: US)
  Receive Date: 20160613
  Receipt Date: 20160613
  Transmission Date: 20160815
  Serious: Yes (Other)
  Sender: FDA-Public Use
  Company Number: US-AUROBINDO-AUR-APL-2015-11917

PATIENT
  Age: 35 Year
  Sex: Female

DRUGS (3)
  1. AMOXICILLIN 500MG [Suspect]
     Active Substance: AMOXICILLIN
     Indication: ALLERGY TEST
     Dosage: UNK, 500 MG AT 1/100 OF THE DOSE
  2. AMOXICILLIN 500MG [Suspect]
     Active Substance: AMOXICILLIN
     Dosage: 500 MG, FULL DOSE
     Route: 065
  3. AMOXICILLIN 500MG [Suspect]
     Active Substance: AMOXICILLIN
     Dosage: UNK, 500 MG AT 1/10 OF THE DOSE

REACTIONS (7)
  - Rash erythematous [Recovered/Resolved]
  - Acute generalised exanthematous pustulosis [Recovered/Resolved]
  - Lymphadenopathy [Recovered/Resolved]
  - Type IV hypersensitivity reaction [Recovered/Resolved]
  - Rash [Recovered/Resolved]
  - Rash pustular [Recovered/Resolved]
  - Pyrexia [Recovered/Resolved]
